FAERS Safety Report 8444647-4 (Version None)
Quarter: 2012Q2

REPORT INFORMATION
  Report Type: 
  Country: None (occurrence: None)
  Receive Date: 20120323
  Receipt Date: 20110607
  Transmission Date: 20120825
  Serious: Yes (Other)
  Sender: FDA-Public Use
  Company Number: 163-21880-11061289

PATIENT
  Age: 70 Year
  Sex: Female

DRUGS (9)
  1. ACYCLOVIR [Concomitant]
  2. FLUCONAZOLE [Concomitant]
  3. ONDANSETRON [Concomitant]
  4. HYDROCODONE/APAP (PROCET /USA/) [Concomitant]
  5. REVLIMID [Suspect]
     Indication: MULTIPLE MYELOMA
     Dosage: 15 MG, DAILY X 14 DAYS/OFF 7 DAYS, PO
     Route: 048
     Dates: start: 20110405
  6. DEXAMETHASONE [Concomitant]
  7. LORAZEPAM [Concomitant]
  8. PRILOSEC [Concomitant]
  9. MULTI (MULTI) [Concomitant]

REACTIONS (1)
  - DEEP VEIN THROMBOSIS [None]
